FAERS Safety Report 23932945 (Version 1)
Quarter: 2024Q2

REPORT INFORMATION
  Report Type: Spontaneous
  Country: ES (occurrence: ES)
  Receive Date: 20240603
  Receipt Date: 20240603
  Transmission Date: 20240716
  Serious: Yes (Life-Threatening)
  Sender: FDA-Public Use
  Company Number: None

PATIENT
  Age: 62 Year
  Sex: Male

DRUGS (1)
  1. INSULIN GLARGINE [Suspect]
     Active Substance: INSULIN GLARGINE
     Indication: Hyperkalaemia
     Dosage: 200 INTERNATIONAL UNIT, SINGLE
     Route: 042
     Dates: start: 20240415, end: 20240415

REACTIONS (3)
  - Hypoglycaemia [Recovered/Resolved]
  - Wrong dose [Recovered/Resolved]
  - Off label use [Unknown]

NARRATIVE: CASE EVENT DATE: 20240416
